FAERS Safety Report 6321780-4 (Version None)
Quarter: 2009Q3

REPORT INFORMATION
  Report Type: 
  Country: None (occurrence: None)
  Receive Date: 20090824
  Receipt Date: 20070925
  Transmission Date: 20100115
  Serious: Yes (Other)
  Sender: FDA-Public Use
  Company Number: US-ASTRAZENECA-2006UW24153

PATIENT
  Age: 16895 Day
  Sex: Male
  Weight: 140.6 kg

DRUGS (37)
  1. SEROQUEL [Suspect]
     Indication: HALLUCINATION, AUDITORY
     Dosage: 200 MG AM; 800 MG HS
     Route: 048
     Dates: start: 20040101, end: 20060330
  2. SEROQUEL [Suspect]
     Indication: PSYCHOTIC DISORDER
     Dosage: 200 MG AM; 800 MG HS
     Route: 048
     Dates: start: 20040101, end: 20060330
  3. SEROQUEL [Suspect]
     Indication: DEPRESSION
     Dosage: 200 MG AM; 800 MG HS
     Route: 048
     Dates: start: 20040101, end: 20060330
  4. SEROQUEL [Suspect]
     Dosage: 200MG AM, 700 MG QHS
     Route: 048
     Dates: start: 20051208
  5. SEROQUEL [Suspect]
     Dosage: 200MG AM, 700 MG QHS
     Route: 048
     Dates: start: 20051208
  6. SEROQUEL [Suspect]
     Dosage: 200MG AM, 700 MG QHS
     Route: 048
     Dates: start: 20051208
  7. GEODON [Concomitant]
     Route: 048
     Dates: start: 20060401
  8. REMERON [Concomitant]
     Dates: start: 20010101
  9. TRAZODONE HCL [Concomitant]
  10. ZOLOFT [Concomitant]
     Dates: start: 20060101
  11. CELEXA [Concomitant]
     Dates: start: 20060101
  12. LAMICTAL [Concomitant]
     Dates: start: 20060101
  13. VISTARIL [Concomitant]
     Dates: start: 20060101, end: 20070101
  14. BUSPAR [Concomitant]
     Dates: start: 20050101, end: 20060101
  15. ELAVIL [Concomitant]
     Dates: start: 19850101
  16. ELAVIL [Concomitant]
     Dosage: 50-300 MG
     Route: 048
     Dates: start: 20051229
  17. EFFEXOR [Concomitant]
     Dates: start: 20000101, end: 20070101
  18. PROZAC [Concomitant]
     Dates: start: 20000101, end: 20010101
  19. PAXIL [Concomitant]
  20. HYDROXYZINE [Concomitant]
     Indication: ANXIETY
     Dosage: 50 MG FOUR TIMES A DAY AS NEEDED
     Dates: start: 20051208
  21. BUSPIRONE HCL [Concomitant]
     Dates: start: 20051208
  22. CLONIDINE [Concomitant]
     Dosage: 0.4-0.9 MG
     Route: 048
     Dates: start: 20060322
  23. ZESTRIL [Concomitant]
     Dosage: 20 MG BID,40 MG AT MORNING
     Dates: start: 20061030
  24. ASPIRIN [Concomitant]
     Dosage: 81-325 MG
     Dates: start: 20061030
  25. SINGULAIR [Concomitant]
     Dates: start: 20061030, end: 20070222
  26. MINOXIDIL [Concomitant]
     Dosage: 10-30 MG
     Dates: start: 20061030
  27. INSULIN [Concomitant]
     Dosage: 70/30 18 UNITS IN MORNING AND 14 IN THE EVENING
     Dates: start: 20061030
  28. NIFEDIPINE [Concomitant]
     Route: 048
     Dates: start: 20060719
  29. LOPRESSOR [Concomitant]
     Dosage: 50-100 MG
     Dates: start: 20060913
  30. CITALOPRAM HYDROBROMIDE [Concomitant]
     Dosage: 60-100 MG
     Route: 048
     Dates: start: 20061030
  31. LIPITOR [Concomitant]
     Indication: HYPERLIPIDAEMIA
     Dates: start: 20061030
  32. SPIRONOLACTONE [Concomitant]
     Dates: start: 20061030
  33. LASIX [Concomitant]
     Dosage: 80-160 MG
     Route: 048
     Dates: start: 20061030
  34. HYDRALAZINE HCL [Concomitant]
     Route: 048
     Dates: start: 20061030
  35. AVANDIA [Concomitant]
     Dates: start: 20060201
  36. ENALAPRIL MALEATE [Concomitant]
     Dosage: 5-30 MG
     Route: 048
     Dates: start: 20060201
  37. ZYPREXA [Concomitant]
     Route: 048
     Dates: start: 20010101, end: 20041001

REACTIONS (4)
  - DIABETES MELLITUS [None]
  - DIABETIC NEUROPATHY [None]
  - DIABETIC RETINOPATHY [None]
  - TYPE 1 DIABETES MELLITUS [None]
